FAERS Safety Report 5292586-2 (Version None)
Quarter: 2007Q2

REPORT INFORMATION
  Report Type: 
  Country: None (occurrence: None)
  Receive Date: 20070404
  Receipt Date: 20070323
  Transmission Date: 20071010
  Serious: Yes (Hospitalization, Other)
  Sender: FDA-Public Use
  Company Number: PAR_1424_2007

PATIENT
  Age: 8 Year
  Sex: Male

DRUGS (3)
  1. IBUPROFEN [Suspect]
     Indication: VIRAEMIA
     Dosage: 200 MG TID PO
     Route: 048
  2. PARACETAMOL [Suspect]
     Indication: VIRAEMIA
     Dosage: 500 MG QID PO
     Route: 048
  3. CEFTRIAXONE [Suspect]
     Indication: LUNG CONSOLIDATION
     Dosage: DF UNK IV
     Route: 042

REACTIONS (16)
  - ABDOMINAL PAIN [None]
  - ANURIA [None]
  - BLOOD CREATININE INCREASED [None]
  - CYSTOSCOPY ABNORMAL [None]
  - HAEMORRHAGE [None]
  - LUNG CONSOLIDATION [None]
  - MUSCULOSKELETAL STIFFNESS [None]
  - OEDEMA PERIPHERAL [None]
  - POST PROCEDURAL COMPLICATION [None]
  - RASH MACULAR [None]
  - RENAL DISORDER [None]
  - RENAL PAPILLARY NECROSIS [None]
  - SOMNOLENCE [None]
  - URETERIC OBSTRUCTION [None]
  - URINE OUTPUT DECREASED [None]
  - VOMITING [None]
